FAERS Safety Report 12644842 (Version 3)
Quarter: 2016Q3

REPORT INFORMATION
  Report Type: Report from Study
  Country: US (occurrence: US)
  Receive Date: 20160811
  Receipt Date: 20160822
  Transmission Date: 20161109
  Serious: Yes (Hospitalization, Other)
  Sender: FDA-Public Use
  Company Number: US-GILEAD-2016-0224397

PATIENT
  Age: 69 Year
  Sex: Female

DRUGS (1)
  1. RANOLAZINE [Suspect]
     Active Substance: RANOLAZINE
     Indication: ANGINA PECTORIS
     Dosage: 1000 MG, UNK
     Route: 048

REACTIONS (10)
  - Transient ischaemic attack [Unknown]
  - Motor dysfunction [Unknown]
  - Stent placement [Unknown]
  - Road traffic accident [Unknown]
  - Dysgraphia [Unknown]
  - Gait disturbance [Unknown]
  - Nephrolithiasis [Unknown]
  - Bladder cancer [Unknown]
  - Surgery [Unknown]
  - Hernia [Unknown]
